FAERS Safety Report 15493720 (Version 2)
Quarter: 2018Q4

REPORT INFORMATION
  Report Type: Spontaneous
  Country: DE (occurrence: DE)
  Receive Date: 20181012
  Receipt Date: 20181109
  Transmission Date: 20190205
  Serious: Yes (Hospitalization)
  Sender: FDA-Public Use
  Company Number: DE-NAPPMUNDI-USA-2018-0144968

PATIENT
  Age: 79 Year
  Sex: Male
  Weight: 82 kg

DRUGS (9)
  1. EZETROL [Concomitant]
     Active Substance: EZETIMIBE
     Indication: PROPHYLAXIS
     Dosage: 10 MG, QD
     Route: 065
     Dates: start: 1978
  2. CANDECOR [Concomitant]
     Active Substance: CANDESARTAN CILEXETIL
     Indication: HYPERTENSION
     Dosage: 16 MG, QD
     Route: 065
     Dates: start: 1978
  3. DICLOFENAC AL [Concomitant]
     Indication: OSTEOARTHRITIS
     Dosage: 50 MG
     Route: 048
  4. ASPIRIN. [Concomitant]
     Active Substance: ASPIRIN
     Indication: PROPHYLAXIS
     Dosage: 100 MG, QD
     Route: 065
     Dates: start: 1987
  5. ERYPO                              /00928301/ [Suspect]
     Active Substance: ERYTHROPOIETIN
     Dosage: 40000 U, QW
     Route: 048
     Dates: start: 20150908, end: 20151005
  6. ALLOPURINOL. [Concomitant]
     Active Substance: ALLOPURINOL
     Indication: HYPERURICAEMIA
     Dosage: 100 MG, QD
     Route: 065
     Dates: start: 1995
  7. OXYCODONE HYDROCHLORIDE (SIMILAR TO NDA 22-272) [Suspect]
     Active Substance: OXYCODONE HYDROCHLORIDE
     Indication: PRODUCT USED FOR UNKNOWN INDICATION
     Dosage: 10 MG, QD
     Route: 065
     Dates: start: 20151117
  8. ERYPO                              /00928301/ [Suspect]
     Active Substance: ERYTHROPOIETIN
     Indication: MYELODYSPLASTIC SYNDROME
     Dosage: 60000 U, QW
     Route: 048
     Dates: start: 20151006
  9. BISOPROLOL [Concomitant]
     Active Substance: BISOPROLOL
     Indication: CORONARY ARTERY DISEASE
     Dosage: 5 MG, QD
     Route: 065
     Dates: start: 2002

REACTIONS (3)
  - Arthralgia [Not Recovered/Not Resolved]
  - Cardiac failure [Recovered/Resolved]
  - Tachycardia [Recovered/Resolved]

NARRATIVE: CASE EVENT DATE: 20150929
